FAERS Safety Report 7254295-X (Version None)
Quarter: 2011Q1

REPORT INFORMATION
  Report Type: 
  Country: None (occurrence: None)
  Receive Date: 20110129
  Receipt Date: 20100120
  Transmission Date: 20110831
  Serious: No
  Sender: FDA-Public Use
  Company Number: US-ABBOTT-10P-163-0621982-00

PATIENT
  Sex: Female
  Weight: 38.59 kg

DRUGS (3)
  1. HUMIRA [Suspect]
     Dosage: 2 PENS EVERY OTHER WEEK
     Route: 050
  2. HUMIRA [Suspect]
     Indication: CROHN'S DISEASE
     Dosage: 2 PENS WEEKLY
     Route: 058
  3. HUMIRA [Suspect]
     Dosage: 3 PEN LOADING DOSE
     Route: 050

REACTIONS (2)
  - RECTAL HAEMORRHAGE [None]
  - CROHN'S DISEASE [None]
